FAERS Safety Report 18458057 (Version 2)
Quarter: 2021Q1

REPORT INFORMATION
  Report Type: Spontaneous
  Country: US (occurrence: US)
  Receive Date: 20201103
  Receipt Date: 20210312
  Transmission Date: 20210419
  Serious: No
  Sender: FDA-Public Use
  Company Number: US-FARMAPROD-202009-1166

PATIENT
  Age: 64 Year
  Sex: Female

DRUGS (22)
  1. INVELTYS [Concomitant]
     Active Substance: LOTEPREDNOL ETABONATE
     Dosage: DROPS SUSPENSION
     Dates: start: 20200924
  2. CELECOXIB. [Concomitant]
     Active Substance: CELECOXIB
  3. HYDROXYCHLOROQUINE SULFATE. [Concomitant]
     Active Substance: HYDROXYCHLOROQUINE SULFATE
  4. PRED FORTE [Concomitant]
     Active Substance: PREDNISOLONE ACETATE
     Dosage: DROPS SUSPENSION
  5. FLUTICASONE/SALMETEROL [Concomitant]
     Active Substance: FLUTICASONE PROPIONATE\SALMETEROL XINAFOATE
  6. DOXYCYCLINE HYCLATE. [Concomitant]
     Active Substance: DOXYCYCLINE HYCLATE
  7. LEVOTHYROXINE SODIUM. [Concomitant]
     Active Substance: LEVOTHYROXINE SODIUM
  8. ERYTHROMYCIN. [Concomitant]
     Active Substance: ERYTHROMYCIN
  9. CEVIMELINE HCL [Concomitant]
     Active Substance: CEVIMELINE HYDROCHLORIDE
  10. LOTEPREDNOL ETABONATE [Concomitant]
     Active Substance: LOTEPREDNOL ETABONATE
  11. OXERVATE [Suspect]
     Active Substance: CENEGERMIN-BKBJ
     Indication: NEUROTROPHIC KERATOPATHY
     Route: 047
     Dates: start: 20200825, end: 20201020
  12. BIOTIN [Concomitant]
     Active Substance: BIOTIN
  13. OMEGA?3/VITAMINE D [Concomitant]
     Dosage: 150?500 MG DELAY RELEASE CAPSULE
  14. OXERVATE [Suspect]
     Active Substance: CENEGERMIN-BKBJ
     Dates: start: 20201103
  15. MULTIVITAMINES [Concomitant]
     Active Substance: VITAMINS
  16. MYRBETRIQ [Concomitant]
     Active Substance: MIRABEGRON
     Dosage: EXTENDED RELEASE TABLET 24 H
  17. BUDESONIDE. [Concomitant]
     Active Substance: BUDESONIDE
     Dosage: 0.5 MG/2ML AMPUL?NEB
  18. REFRESH PLUS [Concomitant]
     Active Substance: CARBOXYMETHYLCELLULOSE SODIUM
     Dosage: DROPERETTE
  19. GABAPENTIN. [Concomitant]
     Active Substance: GABAPENTIN
  20. MOXIFLOXACIN. [Concomitant]
     Active Substance: MOXIFLOXACIN
  21. TREXALL [Concomitant]
     Active Substance: METHOTREXATE SODIUM
  22. PREDNISONE. [Concomitant]
     Active Substance: PREDNISONE

REACTIONS (8)
  - Photophobia [Unknown]
  - Vision blurred [Unknown]
  - Vision blurred [Unknown]
  - Eyelid pain [Recovering/Resolving]
  - Eyelid irritation [Unknown]
  - Corneal abrasion [Unknown]
  - Eye irritation [Unknown]
  - Eye pain [Unknown]

NARRATIVE: CASE EVENT DATE: 20200925
